FAERS Safety Report 10565171 (Version 1)
Quarter: 2014Q4

REPORT INFORMATION
  Report Type: Spontaneous
  Country: IT (occurrence: None)
  Receive Date: 20141103
  Receipt Date: 20141103
  Transmission Date: 20150529
  Serious: Yes (Hospitalization, Other)
  Sender: FDA-Public Use
  Company Number: 2014SGN00064

PATIENT
  Sex: Female
  Weight: 65 kg

DRUGS (11)
  1. CYCLOPHOSPHAMIDE (CYCLOPHOSPHAMIDE) INJECTION [Suspect]
     Active Substance: CYCLOPHOSPHAMIDE
     Indication: ANAPLASTIC LARGE CELL LYMPHOMA T- AND NULL-CELL TYPES
     Dosage: Q21D
     Route: 042
     Dates: start: 20140117, end: 20140117
  2. DOXORUBICIN [Suspect]
     Active Substance: DOXORUBICIN
     Indication: T-CELL LYMPHOMA
     Dosage: Q21D
     Route: 042
     Dates: start: 20140117, end: 20140117
  3. FLUCONAZOLE (FLUCONAZOLE) [Concomitant]
     Active Substance: FLUCONAZOLE
  4. OMEPRAZOLE (OMEPRAZOLE) [Concomitant]
     Active Substance: OMEPRAZOLE
  5. PREDNISONE. [Suspect]
     Active Substance: PREDNISONE
     Indication: T-CELL LYMPHOMA
     Dosage: QCYCLE
     Route: 048
     Dates: start: 20140117, end: 20140117
  6. FUROSEMIDE (FUROSEMIDE SODIUM) [Concomitant]
  7. CEFTRIAXONE (CEFTRIAXONE) [Concomitant]
     Active Substance: CEFTRIAXONE
  8. STUDY DRUG [Suspect]
     Active Substance: INVESTIGATIONAL PRODUCT
     Indication: T-CELL LYMPHOMA
     Dosage: BLINDED, INFORMATION WITHELD.
     Dates: start: 20140117, end: 20140117
  9. ELECTROLYTE SOLUTIONS [Concomitant]
     Active Substance: UNSPECIFIED INGREDIENT
  10. ACETAMINOPHEN (ACETAMINOPHEN) [Concomitant]
     Active Substance: ACETAMINOPHEN
  11. PREDNISONE (PREDNISONE ACETATE) [Concomitant]

REACTIONS (9)
  - Malignant neoplasm progression [None]
  - T-cell lymphoma [None]
  - Thrombocytopenia [None]
  - Leukopenia [None]
  - Hyperuricaemia [None]
  - Fluid retention [None]
  - Bone marrow toxicity [None]
  - Staphylococcal sepsis [None]
  - Oliguria [None]

NARRATIVE: CASE EVENT DATE: 20140114
